FAERS Safety Report 9459510 (Version 1)
Quarter: 2013Q3

REPORT INFORMATION
  Report Type: Spontaneous
  Country: US (occurrence: US)
  Receive Date: 20130815
  Receipt Date: 20130815
  Transmission Date: 20140515
  Serious: No
  Sender: FDA-Public Use
  Company Number: US-PFIZER INC-2013234665

PATIENT
  Age: 55 Year
  Sex: Female
  Weight: 133 kg

DRUGS (5)
  1. ARTHROTEC [Suspect]
     Indication: ARTHRITIS
     Dosage: 0.2/50 MG, 2X/DAY
     Route: 048
     Dates: start: 201301, end: 201308
  2. ARTHROTEC [Suspect]
     Dosage: 0.2/75MG, 2X/DAY
     Route: 048
     Dates: start: 201308
  3. LUNESTA [Concomitant]
     Indication: SLEEP DISORDER
     Dosage: 3 MG, UNK
  4. OMEPRAZOLE [Concomitant]
     Indication: GASTROOESOPHAGEAL REFLUX DISEASE
     Dosage: UNK
  5. ALEVE [Concomitant]
     Indication: PAIN
     Dosage: UNK, AS NEEDED

REACTIONS (1)
  - Drug ineffective [Unknown]
